FAERS Safety Report 9004732 (Version 1)
Quarter: 2013Q1

REPORT INFORMATION
  Report Type: Spontaneous
  Country: US (occurrence: None)
  Receive Date: 20130104
  Receipt Date: 20130104
  Transmission Date: 20140127
  Serious: No
  Sender: FDA-Public Use
  Company Number: None

PATIENT
  Age: 71 Year
  Sex: Female
  Weight: 58.97 kg

DRUGS (1)
  1. HYDROCODONE [Suspect]
     Indication: BACK PAIN
     Dosage: 1 TABLET 3 TIMES A DAY, ORAL
     Route: 048
     Dates: start: 20121030, end: 20121226

REACTIONS (3)
  - Product quality issue [None]
  - Drug ineffective [None]
  - Product substitution issue [None]
